FAERS Safety Report 8887563 (Version 1)
Quarter: 2012Q4

REPORT INFORMATION
  Report Type: Spontaneous
  Country: JP (occurrence: None)
  Receive Date: 20121031
  Receipt Date: 20121031
  Transmission Date: 20130627
  Serious: Yes (Other)
  Sender: FDA-Public Use
  Company Number: FK201203184

PATIENT
  Age: 47 Year
  Sex: Female

DRUGS (4)
  1. LEUCOVORIN CALCIUM [Suspect]
     Indication: METASTASES TO LUNG
  2. FLUOROURACIL (FLUOROURACIL) [Suspect]
  3. IRINOTECAN [Suspect]
  4. BEVACIZUMAB [Suspect]

REACTIONS (1)
  - Neutropenia [None]
